FAERS Safety Report 7917050-0 (Version None)
Quarter: 2011Q4

REPORT INFORMATION
  Report Type: 
  Country: None (occurrence: None)
  Receive Date: 20111116
  Receipt Date: 20111111
  Transmission Date: 20120403
  Serious: Yes (Other)
  Sender: FDA-Public Use
  Company Number: US-PFIZER INC-2011278383

PATIENT

DRUGS (2)
  1. THIOTHIXENE HCL [Suspect]
     Dosage: UNK
  2. NAVANE [Suspect]
     Dosage: 2 MG, UNK

REACTIONS (3)
  - VOMITING [None]
  - NAUSEA [None]
  - SUICIDAL IDEATION [None]
